FAERS Safety Report 15684956 (Version 1)
Quarter: 2018Q4

REPORT INFORMATION
  Report Type: Spontaneous
  Country: US (occurrence: US)
  Receive Date: 20181204
  Receipt Date: 20181204
  Transmission Date: 20190205
  Serious: Yes (Hospitalization)
  Sender: FDA-Public Use
  Company Number: US-ANTARES PHARMA, INC.-2018-LIT-ME-0575

PATIENT
  Age: 72 Year
  Sex: Female

DRUGS (3)
  1. RITUXIMAB. [Suspect]
     Active Substance: RITUXIMAB
     Indication: DIFFUSE LARGE B-CELL LYMPHOMA
     Dosage: 9 CYCLES
     Dates: start: 201111, end: 201207
  2. METHOTREXATE. [Suspect]
     Active Substance: METHOTREXATE
     Indication: DIFFUSE LARGE B-CELL LYMPHOMA
     Dosage: 9 CYCLES
     Dates: start: 201111, end: 201207
  3. RADIOTHERAPY [Suspect]
     Active Substance: RADIATION THERAPY
     Indication: DIFFUSE LARGE B-CELL LYMPHOMA

REACTIONS (4)
  - Endometrial cancer [Recovered/Resolved]
  - Visual impairment [Unknown]
  - Intraocular melanoma [Unknown]
  - Central nervous system lymphoma [Recovered/Resolved]
